FAERS Safety Report 11334323 (Version 6)
Quarter: 2016Q3

REPORT INFORMATION
  Report Type: Report from Study
  Country: US (occurrence: US)
  Receive Date: 20150803
  Receipt Date: 20160921
  Transmission Date: 20161109
  Serious: Yes (Other)
  Sender: FDA-Public Use
  Company Number: PHHY2014US159839

PATIENT
  Age: 36 Year
  Sex: Female

DRUGS (3)
  1. TRIAMCINOLONE [Concomitant]
     Active Substance: TRIAMCINOLONE
     Indication: DERMATITIS
     Dosage: UNK
     Route: 065
     Dates: start: 20141007
  2. GILENYA [Suspect]
     Active Substance: FINGOLIMOD HYDROCHLORIDE
     Indication: MULTIPLE SCLEROSIS
     Dosage: 0.5 MG, QD
     Route: 048
  3. KENALOG [Concomitant]
     Active Substance: TRIAMCINOLONE ACETONIDE
     Indication: DERMATITIS
     Dosage: UNK
     Route: 065
     Dates: start: 20141007

REACTIONS (10)
  - Gait disturbance [Unknown]
  - White blood cell count decreased [Unknown]
  - Aspartate aminotransferase increased [Unknown]
  - Mental impairment [Unknown]
  - Lymphopenia [Recovered/Resolved]
  - Alanine aminotransferase increased [Unknown]
  - Headache [Unknown]
  - Nausea [Unknown]
  - Muscular weakness [Unknown]
  - Skin lesion [Unknown]

NARRATIVE: CASE EVENT DATE: 20140910
